FAERS Safety Report 21907448 (Version 1)
Quarter: 2023Q1

REPORT INFORMATION
  Report Type: Spontaneous
  Country: JP (occurrence: JP)
  Receive Date: 20230125
  Receipt Date: 20230125
  Transmission Date: 20230418
  Serious: Yes (Other)
  Sender: FDA-Public Use
  Company Number: JP-SUN PHARMACEUTICAL INDUSTRIES LTD-2023RR-374452

PATIENT
  Age: 74 Year
  Sex: Female

DRUGS (5)
  1. LEUCOVORIN [Suspect]
     Active Substance: LEUCOVORIN
     Indication: Colon cancer
     Dosage: UNK
     Route: 065
  2. OXALIPLATIN [Suspect]
     Active Substance: OXALIPLATIN
     Indication: Metastases to lymph nodes
     Dosage: UNK
     Route: 065
     Dates: start: 201412, end: 201611
  3. FLUOROURACIL [Suspect]
     Active Substance: FLUOROURACIL
     Indication: Metastases to lymph nodes
     Dosage: UNK
     Route: 065
     Dates: start: 201412, end: 201611
  4. BEVACIZUMAB [Suspect]
     Active Substance: BEVACIZUMAB
     Indication: Metastases to lymph nodes
     Dosage: UNK
     Route: 065
     Dates: start: 201412, end: 201611
  5. LEUCOVORIN [Suspect]
     Active Substance: LEUCOVORIN
     Indication: Metastases to lymph nodes
     Dosage: UNK
     Route: 065
     Dates: start: 201412, end: 201611

REACTIONS (3)
  - Disease recurrence [Recovering/Resolving]
  - Metastasis [Recovering/Resolving]
  - Neuropathy peripheral [Unknown]
